FAERS Safety Report 17081377 (Version 1)
Quarter: 2019Q4

REPORT INFORMATION
  Report Type: Spontaneous
  Country: US (occurrence: US)
  Receive Date: 20191030
  Receipt Date: 20191030
  Transmission Date: 20200122
  Serious: Yes (Hospitalization)
  Sender: FDA-Public Use
  Company Number: None

PATIENT
  Age: 73 Year
  Sex: Male

DRUGS (15)
  1. AMIODARONE [Concomitant]
     Active Substance: AMIODARONE
  2. ASPIRIN. [Concomitant]
     Active Substance: ASPIRIN
  3. FERROUS SULF [Concomitant]
     Active Substance: FERROUS SULFATE
  4. METOPROLOL. [Concomitant]
     Active Substance: METOPROLOL
  5. VITAMIN C [Concomitant]
     Active Substance: ASCORBIC ACID
  6. MYCOPHENOLATE [Suspect]
     Active Substance: MYCOPHENOLIC ACID
     Route: 048
     Dates: start: 20150606
  7. CLOTRIMAZOLE. [Concomitant]
     Active Substance: CLOTRIMAZOLE
  8. FUROSEMIDE. [Concomitant]
     Active Substance: FUROSEMIDE
  9. MAG OXIDE [Concomitant]
     Active Substance: MAGNESIUM OXIDE
  10. AZITHROMYCIN ANHYDROUS. [Concomitant]
     Active Substance: AZITHROMYCIN ANHYDROUS
  11. CALCIUM [Concomitant]
     Active Substance: CALCIUM
  12. MULTI [Concomitant]
  13. ODANSETRON [Concomitant]
     Active Substance: ONDANSETRON
  14. ATORVASTATIN [Concomitant]
     Active Substance: ATORVASTATIN
  15. PANTOPRAZOLE [Concomitant]
     Active Substance: PANTOPRAZOLE

REACTIONS (1)
  - Road traffic accident [None]

NARRATIVE: CASE EVENT DATE: 20191013
